FAERS Safety Report 10251182 (Version 4)
Quarter: 2014Q4

REPORT INFORMATION
  Report Type: Spontaneous
  Country: JP (occurrence: JP)
  Receive Date: 20140620
  Receipt Date: 20141120
  Transmission Date: 20150528
  Serious: Yes (Life-Threatening, Hospitalization, Other)
  Sender: FDA-Public Use
  Company Number: JP-ABBVIE-14P-087-1226275-00

PATIENT
  Age: 72 Year
  Sex: Male
  Weight: 50 kg

DRUGS (8)
  1. PREDNISOLONE. [Concomitant]
     Active Substance: PREDNISOLONE
     Indication: COLITIS ULCERATIVE
     Route: 048
  2. SALAZOSULFAPYRIDINE [Concomitant]
     Active Substance: SULFASALAZINE
     Indication: COLITIS ULCERATIVE
     Route: 054
     Dates: end: 20140414
  3. HUMIRA [Suspect]
     Active Substance: ADALIMUMAB
     Indication: COLITIS ULCERATIVE
     Route: 058
     Dates: start: 20131119, end: 20131119
  4. PANCRELIPASE. [Concomitant]
     Active Substance: PANCRELIPASE
     Indication: PANCREATIC INSUFFICIENCY
     Route: 048
  5. STOMACHICS AND DIGESTIVES [Concomitant]
     Indication: DECREASED APPETITE
     Route: 048
  6. HUMIRA [Suspect]
     Active Substance: ADALIMUMAB
     Route: 058
     Dates: start: 20131203, end: 20131203
  7. HUMIRA [Suspect]
     Active Substance: ADALIMUMAB
     Route: 058
     Dates: start: 20131217, end: 20140327
  8. ASACOL [Suspect]
     Active Substance: MESALAMINE
     Indication: COLITIS ULCERATIVE
     Route: 048
     Dates: end: 20140414

REACTIONS (18)
  - Depressed level of consciousness [Recovered/Resolved]
  - Aspergillus infection [Not Recovered/Not Resolved]
  - Myocardial infarction [Recovered/Resolved with Sequelae]
  - Colitis ulcerative [Recovered/Resolved]
  - Hepatic function abnormal [Recovered/Resolved]
  - Embolic cerebral infarction [Recovered/Resolved with Sequelae]
  - Infection [Not Recovered/Not Resolved]
  - Iron deficiency anaemia [Recovered/Resolved]
  - Neutropenia [Not Recovered/Not Resolved]
  - Histiocytosis haematophagic [Recovered/Resolved with Sequelae]
  - Cardiac ventricular thrombosis [Recovered/Resolved with Sequelae]
  - Staphylococcal infection [Unknown]
  - Cellulitis [Recovered/Resolved]
  - Nutritional condition abnormal [Recovering/Resolving]
  - Disorientation [Unknown]
  - Pancytopenia [Recovered/Resolved]
  - Monoplegia [Unknown]
  - Dementia [Unknown]

NARRATIVE: CASE EVENT DATE: 201403
